FAERS Safety Report 6394985-4 (Version None)
Quarter: 2009Q4

REPORT INFORMATION
  Report Type: 
  Country: None (occurrence: None)
  Receive Date: 20091009
  Receipt Date: 20091002
  Transmission Date: 20100525
  Serious: Yes (Hospitalization)
  Sender: FDA-Public Use
  Company Number: US-B.I. PHARMACEUTICALS,INC./RIDGEFIELD-2009-BP-10497BP

PATIENT
  Age: 73 Year
  Sex: Male

DRUGS (3)
  1. FLOMAX [Suspect]
     Indication: DYSURIA
     Dosage: 0.4 MG
     Route: 048
     Dates: start: 20090608, end: 20090613
  2. FLOMAX [Suspect]
     Dosage: 0.8 MG
     Route: 048
     Dates: start: 20090603, end: 20090607
  3. FLOMAX [Suspect]
     Dosage: 0.4 MG
     Route: 048
     Dates: start: 20090508, end: 20090602

REACTIONS (9)
  - ABDOMINAL DISTENSION [None]
  - ANURIA [None]
  - CONSTIPATION [None]
  - DIARRHOEA [None]
  - DYSURIA [None]
  - GROIN PAIN [None]
  - MUSCLE INJURY [None]
  - PARAESTHESIA [None]
  - SURGERY [None]
